FAERS Safety Report 24854436 (Version 1)
Quarter: 2025Q1

REPORT INFORMATION
  Report Type: Report from Study
  Country: DE (occurrence: DE)
  Receive Date: 20250117
  Receipt Date: 20250117
  Transmission Date: 20250409
  Serious: Yes (Other)
  Sender: ROCHE
  Company Number: DE-ML39632-2407202-0

PATIENT
  Age: 46 Year
  Sex: Female

DRUGS (6)
  1. OCREVUS [Suspect]
     Active Substance: OCRELIZUMAB
     Indication: Relapsing multiple sclerosis
     Route: 042
     Dates: start: 20210720
  2. OCREVUS [Suspect]
     Active Substance: OCRELIZUMAB
     Route: 042
     Dates: start: 20210113, end: 20210121
  3. VAXIGRIP [Concomitant]
     Active Substance: INFLUENZA VIRUS VACCINE
     Route: 030
     Dates: start: 20211111, end: 20211111
  4. FOSTER [Concomitant]
     Active Substance: BECLOMETHASONE\FORMOTEROL
     Indication: Sinobronchitis
     Route: 007
  5. Comirnaty [Concomitant]
     Indication: COVID-19 immunisation
     Route: 030
     Dates: start: 20210428, end: 20210428
  6. Comirnaty [Concomitant]
     Route: 030
     Dates: start: 20210519, end: 20210519

REACTIONS (1)
  - Tubo-ovarian abscess [Recovering/Resolving]

NARRATIVE: CASE EVENT DATE: 20241101
